FAERS Safety Report 17263795 (Version 1)
Quarter: 2020Q1

REPORT INFORMATION
  Report Type: Spontaneous
  Country: FI (occurrence: FI)
  Receive Date: 20200113
  Receipt Date: 20200113
  Transmission Date: 20200409
  Serious: Yes (Death, Hospitalization)
  Sender: FDA-Public Use
  Company Number: FI-MYLANLABS-2020M1004636

PATIENT
  Age: 49 Year

DRUGS (4)
  1. SALBUTAMOL [Suspect]
     Active Substance: ALBUTEROL
     Indication: PROPHYLAXIS
     Dosage: 1 OR 2 DOSES
  2. METHYLPREDNISOLONE. [Suspect]
     Active Substance: METHYLPREDNISOLONE
     Indication: ACUTE GRAFT VERSUS HOST DISEASE
     Dosage: 10 MG/KG
  3. ACYCLOVIR                          /00587301/ [Suspect]
     Active Substance: ACYCLOVIR
     Indication: PRODUCT USED FOR UNKNOWN INDICATION
     Dosage: UNK
  4. AMPHOTERICIN B. [Suspect]
     Active Substance: AMPHOTERICIN B
     Indication: PROPHYLAXIS
     Dosage: 25 MG OF D-AMB FOR IV INFUSION IS DISSOLVED IN 5 ML OF STERILE WATER, INHALED OVER 10-15 MIN
     Route: 055

REACTIONS (2)
  - Aspergillus infection [Fatal]
  - Product use issue [Recovered/Resolved]
